FAERS Safety Report 5608332-6 (Version None)
Quarter: 2008Q1

REPORT INFORMATION
  Report Type: 
  Country: None (occurrence: None)
  Receive Date: 20080130
  Receipt Date: 20080121
  Transmission Date: 20080703
  Serious: Yes (Hospitalization)
  Sender: FDA-Public Use
  Company Number: AT-BOEHRINGER INGELHEIM GMBH, GERMANY-2008-BE-00009BE

PATIENT
  Age: 75 Year
  Sex: Female
  Weight: 64 kg

DRUGS (1)
  1. SIFROL - 0,18 MG - TABLETTEN [Suspect]
     Indication: PARKINSONISM
     Route: 048
     Dates: start: 20071121, end: 20071121

REACTIONS (4)
  - CIRCULATORY COLLAPSE [None]
  - MUSCLE SPASMS [None]
  - NAUSEA [None]
  - VERTIGO [None]
